FAERS Safety Report 5200156-7 (Version None)
Quarter: 2006Q4

REPORT INFORMATION
  Report Type: 
  Country: None (occurrence: None)
  Receive Date: 20061016
  Receipt Date: 20060817
  Transmission Date: 20070319
  Serious: No
  Sender: FDA-Public Use
  Company Number: 2006SP003057

PATIENT
  Age: 51 Year
  Sex: Male
  Weight: 83.9154 kg

DRUGS (8)
  1. LUNESTA [Suspect]
     Indication: INSOMNIA
     Dosage: SEE IMAGE
     Route: 048
     Dates: start: 20050101
  2. SIMVASTATIN [Concomitant]
  3. CARTIA XT [Concomitant]
  4. VALIUM [Concomitant]
  5. NAPROX [Concomitant]
  6. TYLENOL W/ CODEINE NO. 3 [Concomitant]
  7. TYLENOL [Concomitant]
  8. ASPIRIN [Concomitant]

REACTIONS (1)
  - INSOMNIA [None]
